FAERS Safety Report 6293115-7 (Version None)
Quarter: 2009Q3

REPORT INFORMATION
  Report Type: 
  Country: None (occurrence: None)
  Receive Date: 20090729
  Receipt Date: 20090720
  Transmission Date: 20100115
  Serious: Yes (Other)
  Sender: FDA-Public Use
  Company Number: ADR10662009

PATIENT
  Sex: Female

DRUGS (3)
  1. AMLODIPINE [Suspect]
     Indication: HYPERTENSION
  2. BENDROFLUMETHIAZIDE [Concomitant]
  3. DETRUSITOL XL (TOLTERODINE TARTRATE) [Concomitant]

REACTIONS (2)
  - OEDEMA PERIPHERAL [None]
  - URGE INCONTINENCE [None]
